FAERS Safety Report 8975397 (Version 1)
Quarter: 2012Q4

REPORT INFORMATION
  Report Type: Report from Study
  Country: US (occurrence: US)
  Receive Date: 20121219
  Receipt Date: 20121219
  Transmission Date: 20130627
  Serious: Yes (Other)
  Sender: FDA-Public Use
  Company Number: US-ABBOTT-12P-163-1019904-00

PATIENT
  Age: 54 None
  Sex: Male
  Weight: 89.89 kg

DRUGS (1)
  1. HUMIRA [Suspect]
     Indication: CROHN^S DISEASE
     Dates: start: 2009

REACTIONS (3)
  - Tinnitus [Not Recovered/Not Resolved]
  - Tinnitus [Not Recovered/Not Resolved]
  - Thinking abnormal [Recovered/Resolved]
